FAERS Safety Report 10932269 (Version 1)
Quarter: 2015Q1

REPORT INFORMATION
  Report Type: Spontaneous
  Country: US (occurrence: None)
  Receive Date: 20150318
  Receipt Date: 20150318
  Transmission Date: 20150721
  Serious: Yes (Death, Hospitalization, Other)
  Sender: FDA-Public Use
  Company Number: US-ZYDUS-007171

PATIENT
  Age: 66 Year
  Sex: Male

DRUGS (2)
  1. ASPIRIN (ASPIRIN) [Concomitant]
     Active Substance: ASPIRIN
     Indication: PRODUCT USED FOR UNKNOWN INDICATION
  2. WARFARIN (WARFARIN) [Suspect]
     Active Substance: WARFARIN
     Indication: PRODUCT USED FOR UNKNOWN INDICATION

REACTIONS (3)
  - Hiatus hernia [None]
  - Oesophagitis [None]
  - Gastrointestinal haemorrhage [None]
